FAERS Safety Report 9412956 (Version 1)
Quarter: 2013Q3

REPORT INFORMATION
  Report Type: Spontaneous
  Country: US (occurrence: US)
  Receive Date: 20130722
  Receipt Date: 20130722
  Transmission Date: 20140515
  Serious: Yes (Hospitalization)
  Sender: FDA-Public Use
  Company Number: US-GLAXOSMITHKLINE-A0869035A

PATIENT
  Age: 46 Year
  Sex: Male
  Weight: 123.2 kg

DRUGS (1)
  1. AVANDIA [Suspect]
     Indication: DIABETES MELLITUS
     Route: 048

REACTIONS (4)
  - Coronary artery bypass [Unknown]
  - Implantable defibrillator insertion [Unknown]
  - Cardiac failure congestive [Unknown]
  - Myocardial infarction [Unknown]
